FAERS Safety Report 11213567 (Version 1)
Quarter: 2015Q2

REPORT INFORMATION
  Report Type: Spontaneous
  Country: US (occurrence: None)
  Receive Date: 20150622
  Receipt Date: 20150622
  Transmission Date: 20150821
  Serious: Yes (Other)
  Sender: FDA-Public Use
  Company Number: None

PATIENT
  Age: 25 Year
  Sex: Female
  Weight: 53.52 kg

DRUGS (5)
  1. SUBOXONE [Concomitant]
     Active Substance: BUPRENORPHINE HYDROCHLORIDE\NALOXONE HYDROCHLORIDE
  2. ADERALL [Concomitant]
  3. SUBOXONE [Suspect]
     Active Substance: BUPRENORPHINE HYDROCHLORIDE\NALOXONE HYDROCHLORIDE
     Indication: DRUG DEPENDENCE
     Route: 060
     Dates: start: 20150218, end: 20150621
  4. PAXEL [Concomitant]
     Active Substance: PACLITAXEL
  5. SLEEP AIDS [Concomitant]

REACTIONS (2)
  - Feeding disorder [None]
  - Stomatitis [None]

NARRATIVE: CASE EVENT DATE: 20150223
